FAERS Safety Report 9571251 (Version 2)
Quarter: 2013Q4

REPORT INFORMATION
  Report Type: Spontaneous
  Country: DE (occurrence: DE)
  Receive Date: 20131001
  Receipt Date: 20131126
  Transmission Date: 20140711
  Serious: Yes (Death, Hospitalization, Other)
  Sender: FDA-Public Use
  Company Number: DE-ALEXION PHARMACEUTICALS INC.-A201302440

PATIENT
  Age: 1 Year
  Sex: Female
  Weight: 9 kg

DRUGS (1)
  1. SOLIRIS 300MG [Suspect]
     Indication: HAEMOLYTIC URAEMIC SYNDROME
     Dosage: 300 MG, UNK
     Route: 042
     Dates: start: 20130914

REACTIONS (4)
  - Death [Fatal]
  - Drug ineffective [Unknown]
  - Platelet count decreased [Unknown]
  - Viraemia [Unknown]
